FAERS Safety Report 9808352 (Version 2)
Quarter: 2014Q1

REPORT INFORMATION
  Report Type: Spontaneous
  Country: US (occurrence: US)
  Receive Date: 20140110
  Receipt Date: 20140204
  Transmission Date: 20141002
  Serious: Yes (Death, Hospitalization)
  Sender: FDA-Public Use
  Company Number: US-BAXTER-2014BAX000438

PATIENT
  Sex: Female

DRUGS (2)
  1. DIANEAL LOW CALCIUM [Suspect]
     Indication: PERITONEAL DIALYSIS
     Route: 033
     Dates: end: 20131230
  2. EXTRANEAL [Suspect]
     Indication: PERITONEAL DIALYSIS
     Route: 033
     Dates: end: 20131230

REACTIONS (3)
  - Cardiac arrest [Fatal]
  - Myocardial infarction [Fatal]
  - Intestinal obstruction [Unknown]
